FAERS Safety Report 23064943 (Version 2)
Quarter: 2023Q4

REPORT INFORMATION
  Report Type: Spontaneous
  Country: US (occurrence: US)
  Receive Date: 20231013
  Receipt Date: 20231023
  Transmission Date: 20240110
  Serious: No
  Sender: FDA-Public Use
  Company Number: US-PFIZER INC-202300316254

PATIENT
  Age: 43 Year
  Sex: Male
  Weight: 172.82 kg

DRUGS (3)
  1. TESTOSTERONE CYPIONATE [Suspect]
     Active Substance: TESTOSTERONE CYPIONATE
     Indication: Blood testosterone
     Dosage: 200 MG (200 MG, INJECTION)
  2. TESTOSTERONE CYPIONATE [Suspect]
     Active Substance: TESTOSTERONE CYPIONATE
     Dosage: UNK
  3. TESTOSTERONE CYPIONATE [Suspect]
     Active Substance: TESTOSTERONE CYPIONATE
     Dosage: 200 MG/ML, WEEKLY (200MG/1ML SINGLE DOSE VIAL. TAKES 1 DOSE ONCE A WEEK IN THE MUSCLE)
     Route: 030

REACTIONS (10)
  - Injection site swelling [Not Recovered/Not Resolved]
  - Injection site mass [Not Recovered/Not Resolved]
  - Injection site pain [Not Recovered/Not Resolved]
  - Infection [Unknown]
  - Infection [Unknown]
  - Arthritis [Unknown]
  - Arthralgia [Unknown]
  - Confusional state [Unknown]
  - Back pain [Unknown]
  - Pain [Unknown]

NARRATIVE: CASE EVENT DATE: 20230801
